FAERS Safety Report 12911152 (Version 1)
Quarter: 2016Q4

REPORT INFORMATION
  Report Type: Report from Study
  Country: NL (occurrence: NL)
  Receive Date: 20161104
  Receipt Date: 20161104
  Transmission Date: 20170207
  Serious: Yes (Other)
  Sender: FDA-Public Use
  Company Number: NL-CIPLA LTD.-2016NL10053

PATIENT

DRUGS (7)
  1. NEVIRAPINE. [Suspect]
     Active Substance: NEVIRAPINE
     Dosage: 200 MG, SINGLE-DOSE DURING ONSET OF LABOUR
     Route: 064
  2. PHENYTOIN. [Suspect]
     Active Substance: PHENYTOIN
     Dosage: UNK,FROM THE ONSET OF LABOUR FOR 7 DAYS
     Route: 064
  3. ZIDOVUDINE. [Suspect]
     Active Substance: ZIDOVUDINE
     Dosage: UNK, POST DELIVERY FOR 7 DAYS
     Route: 064
  4. LAMIVUDINE. [Suspect]
     Active Substance: LAMIVUDINE
     Dosage: UNK, POST DELIVERY
     Route: 063
  5. ZIDOVUDINE. [Suspect]
     Active Substance: ZIDOVUDINE
     Dosage: UNK
     Route: 064
  6. ZIDOVUDINE. [Suspect]
     Active Substance: ZIDOVUDINE
     Dosage: UNK,AT ONSET OF LABOUR
     Route: 064
  7. LAMIVUDINE. [Suspect]
     Active Substance: LAMIVUDINE
     Dosage: UNK, EVERY 12 HOURS UNTIL DELIVERY
     Route: 064

REACTIONS (2)
  - Foetal exposure during pregnancy [Unknown]
  - Adverse event [Unknown]
